FAERS Safety Report 7321433-X (Version None)
Quarter: 2011Q1

REPORT INFORMATION
  Report Type: 
  Country: None (occurrence: None)
  Receive Date: 20110228
  Receipt Date: 20100614
  Transmission Date: 20110831
  Serious: Yes (Other)
  Sender: FDA-Public Use
  Company Number: US-PFIZER INC-2010074972

PATIENT
  Sex: Female
  Weight: 84 kg

DRUGS (6)
  1. GEODON [Suspect]
     Indication: MIGRAINE
  2. GEODON [Suspect]
     Indication: APHASIA
     Dosage: 80 MG, 2X/DAY
     Route: 048
     Dates: start: 20100101
  3. GEODON [Suspect]
     Indication: THINKING ABNORMAL
  4. NEURONTIN [Concomitant]
     Dosage: UNK
  5. SYNTHROID [Concomitant]
     Dosage: UNK
  6. TOPAMAX [Concomitant]
     Dosage: UNK

REACTIONS (8)
  - FALL [None]
  - TREMOR [None]
  - FEELING ABNORMAL [None]
  - COMPLEX PARTIAL SEIZURES [None]
  - BLOOD PRESSURE ABNORMAL [None]
  - DRUG INEFFECTIVE [None]
  - LOSS OF CONSCIOUSNESS [None]
  - DYSKINESIA [None]
